FAERS Safety Report 6449279-5 (Version None)
Quarter: 2009Q4

REPORT INFORMATION
  Report Type: 
  Country: None (occurrence: None)
  Receive Date: 20091120
  Receipt Date: 20091109
  Transmission Date: 20100525
  Serious: Yes (Hospitalization)
  Sender: FDA-Public Use
  Company Number: NO-JNJFOC-20090902819

PATIENT
  Age: 17 Year
  Sex: Female

DRUGS (5)
  1. REMICADE [Suspect]
     Indication: SARCOIDOSIS
     Route: 042
     Dates: start: 20040101, end: 20090601
  2. REMICADE [Suspect]
     Indication: JUVENILE ARTHRITIS
     Route: 042
     Dates: start: 20040101, end: 20090601
  3. METHOTREXATE [Suspect]
     Indication: SARCOIDOSIS
     Route: 042
  4. METHOTREXATE [Suspect]
     Indication: JUVENILE ARTHRITIS
     Route: 042
  5. IBUX [Concomitant]

REACTIONS (4)
  - HEPATIC ENZYME INCREASED [None]
  - INFECTION [None]
  - LEUKOPENIA [None]
  - THROMBOCYTOPENIA [None]
